FAERS Safety Report 5825099-7 (Version None)
Quarter: 2008Q3

REPORT INFORMATION
  Report Type: 
  Country: None (occurrence: None)
  Receive Date: 20080725
  Receipt Date: 20080725
  Transmission Date: 20090109
  Serious: Yes (Hospitalization)
  Sender: FDA-Public Use
  Company Number: None

PATIENT

DRUGS (2)
  1. HALOPERIDOL [Suspect]
     Dosage: 1 MG HS PO
     Route: 048
     Dates: start: 20080522, end: 20080522
  2. GABAPENTIN [Suspect]
     Dosage: 900 MG TID PO
     Route: 048
     Dates: start: 20080522, end: 20080522

REACTIONS (19)
  - AGITATION [None]
  - BLOOD CREATINE PHOSPHOKINASE INCREASED [None]
  - CHOREA [None]
  - CHRONIC OBSTRUCTIVE PULMONARY DISEASE [None]
  - CONFUSIONAL STATE [None]
  - DISORIENTATION [None]
  - DRUG EFFECT DECREASED [None]
  - DYSKINESIA [None]
  - EXTRAPYRAMIDAL DISORDER [None]
  - FALL [None]
  - HALLUCINATION, VISUAL [None]
  - HYPOXIA [None]
  - MENTAL STATUS CHANGES [None]
  - NEUROLEPTIC MALIGNANT SYNDROME [None]
  - OVERDOSE [None]
  - PARADOXICAL DRUG REACTION [None]
  - PYREXIA [None]
  - RESTLESSNESS [None]
  - TREMOR [None]
